FAERS Safety Report 7321902-2 (Version None)
Quarter: 2011Q1

REPORT INFORMATION
  Report Type: 
  Country: None (occurrence: None)
  Receive Date: 20110228
  Receipt Date: 20110216
  Transmission Date: 20110831
  Serious: Yes (Other)
  Sender: FDA-Public Use
  Company Number: CA-ROCHE-748904

PATIENT
  Sex: Female
  Weight: 49.2 kg

DRUGS (3)
  1. FEMARA [Concomitant]
  2. BEVACIZUMAB [Suspect]
     Indication: OVARIAN CANCER
     Dosage: FORM: INFUSION
     Route: 042
     Dates: start: 20090310
  3. AROMASIN [Concomitant]

REACTIONS (12)
  - HEADACHE [None]
  - NAUSEA [None]
  - CARBOHYDRATE ANTIGEN 125 INCREASED [None]
  - LYMPHOCYTE COUNT DECREASED [None]
  - WHITE BLOOD CELL COUNT DECREASED [None]
  - CHILLS [None]
  - COUGH [None]
  - NEUTROPHIL COUNT DECREASED [None]
  - PERIANAL ERYTHEMA [None]
  - DYSPNOEA EXERTIONAL [None]
  - MYALGIA [None]
  - PLATELET COUNT DECREASED [None]
